FAERS Safety Report 7221585-6 (Version None)
Quarter: 2011Q1

REPORT INFORMATION
  Report Type: 
  Country: None (occurrence: None)
  Receive Date: 20110112
  Receipt Date: 20110106
  Transmission Date: 20110831
  Serious: Yes (Death, Other)
  Sender: FDA-Public Use
  Company Number: US-PFIZER INC-2011004229

PATIENT
  Sex: Female
  Weight: 61.224 kg

DRUGS (7)
  1. FEMARA [Concomitant]
     Indication: NEOPLASM MALIGNANT
     Dosage: UNK
  2. NITROGLYCERIN [Concomitant]
     Dosage: UNK
  3. DEPAKOTE [Concomitant]
     Dosage: UNK
  4. CELEBREX [Suspect]
     Indication: ARTHRITIS
     Dosage: 200 MG, DAILY
     Route: 048
     Dates: start: 20090417
  5. CARTIA XT [Concomitant]
     Indication: CARDIAC DISORDER
     Dosage: UNK
  6. FENTANYL [Suspect]
     Indication: PAIN
     Dosage: UNK
  7. MORPHINE [Suspect]
     Indication: PAIN
     Dosage: UNK

REACTIONS (3)
  - MYOCARDIAL INFARCTION [None]
  - TOXICITY TO VARIOUS AGENTS [None]
  - CARDIAC DISORDER [None]
